FAERS Safety Report 23864984 (Version 1)
Quarter: 2024Q2

REPORT INFORMATION
  Report Type: Spontaneous
  Country: IT (occurrence: IT)
  Receive Date: 20240516
  Receipt Date: 20240516
  Transmission Date: 20240715
  Serious: Yes (Hospitalization)
  Sender: FDA-Public Use
  Company Number: None

PATIENT
  Age: 45 Year
  Sex: Male
  Weight: 85 kg

DRUGS (7)
  1. SEVOFLURANE [Suspect]
     Active Substance: SEVOFLURANE
     Indication: Anaesthesia
     Route: 055
     Dates: start: 20240126, end: 20240126
  2. MAGNESIUM SULFATE [Concomitant]
     Active Substance: MAGNESIUM SULFATE\MAGNESIUM SULFATE HEPTAHYDRATE
     Indication: Analgesic therapy
     Route: 042
     Dates: start: 20240126, end: 20240126
  3. CEFAZOLIN SODIUM [Concomitant]
     Active Substance: CEFAZOLIN SODIUM
     Indication: Prophylaxis
     Dosage: SODICA
     Route: 042
     Dates: start: 20240126, end: 20240126
  4. CISATRACURIUM BESYLATE [Suspect]
     Active Substance: CISATRACURIUM BESYLATE
     Indication: Product used for unknown indication
     Route: 042
     Dates: start: 20240126, end: 20240126
  5. PANTOPRAZOLE SODIUM [Concomitant]
     Active Substance: PANTOPRAZOLE SODIUM
     Indication: Prophylaxis against gastrointestinal ulcer
     Dosage: SODICO
     Route: 042
     Dates: start: 20240126, end: 20240126
  6. DEXAMETHASONE [Concomitant]
     Active Substance: DEXAMETHASONE
     Indication: Prophylaxis of nausea and vomiting
     Route: 042
     Dates: start: 20240126, end: 20240126
  7. SUFENTANIL [Suspect]
     Active Substance: SUFENTANIL
     Indication: Analgesic therapy
     Dosage: PIRAMAL
     Route: 042
     Dates: start: 20240126, end: 20240126

REACTIONS (4)
  - End-tidal CO2 increased [Recovered/Resolved]
  - Hyperthermia malignant [Recovered/Resolved]
  - Heart rate increased [Recovered/Resolved]
  - Body temperature increased [Recovered/Resolved]

NARRATIVE: CASE EVENT DATE: 20240126
